FAERS Safety Report 24645539 (Version 1)
Quarter: 2024Q4

REPORT INFORMATION
  Report Type: Spontaneous
  Country: ES (occurrence: ES)
  Receive Date: 20241121
  Receipt Date: 20241121
  Transmission Date: 20250115
  Serious: Yes (Other)
  Sender: AMGEN
  Company Number: ES-ROCHE-10000126920

PATIENT
  Sex: Female
  Weight: 48 kg

DRUGS (3)
  1. TRASTUZUMAB [Suspect]
     Active Substance: TRASTUZUMAB
     Indication: Breast cancer metastatic
     Dosage: UNK UNK, Q3WK
     Route: 065
     Dates: start: 20200604, end: 20230714
  2. PERTUZUMAB [Suspect]
     Active Substance: PERTUZUMAB
     Indication: Breast cancer metastatic
     Dosage: UNK UNK, Q3WK
     Route: 065
     Dates: start: 20200406, end: 20230714
  3. PACLITAXEL [Suspect]
     Active Substance: PACLITAXEL
     Indication: Breast cancer metastatic
     Dosage: UNK UNK, Q3WK
     Route: 065
     Dates: start: 20200604, end: 20230714

REACTIONS (2)
  - HER2 positive breast cancer [Unknown]
  - Off label use [Unknown]
